FAERS Safety Report 24705838 (Version 1)
Quarter: 2024Q4

REPORT INFORMATION
  Report Type: Report from Study
  Country: US (occurrence: US)
  Receive Date: 20241206
  Receipt Date: 20241206
  Transmission Date: 20250114
  Serious: Yes (Other)
  Sender: GILEAD
  Company Number: US-GILEAD-2024-0696112

PATIENT
  Age: 69 Year
  Sex: Female

DRUGS (1)
  1. SACITUZUMAB GOVITECAN-HZIY [Suspect]
     Active Substance: SACITUZUMAB GOVITECAN-HZIY
     Indication: Breast cancer
     Dosage: 390 MG (INFUSE 390MG INTRAVENOUSLY OVER 1 2 HOURS ON DAYS 1 AND 8 OF EVERY 21 DAYS)
     Route: 042
     Dates: start: 20241004

REACTIONS (1)
  - Disease progression [Unknown]
